FAERS Safety Report 19484722 (Version 1)
Quarter: 2021Q3

REPORT INFORMATION
  Report Type: Spontaneous
  Country: CN (occurrence: CN)
  Receive Date: 20210701
  Receipt Date: 20210701
  Transmission Date: 20211014
  Serious: Yes (Other)
  Sender: FDA-Public Use
  Company Number: NVSC2021CN144781

PATIENT
  Age: 87 Year
  Sex: Male
  Weight: 56 kg

DRUGS (1)
  1. IMATINIB MESILATE [Suspect]
     Active Substance: IMATINIB MESYLATE
     Indication: MALIGNANT MESENCHYMOMA
     Dosage: 0.4 G, QD
     Route: 048
     Dates: start: 20210306, end: 20210607

REACTIONS (4)
  - Nausea [Recovering/Resolving]
  - Eating disorder [Recovering/Resolving]
  - Vomiting [Recovering/Resolving]
  - Abdominal pain [Recovering/Resolving]

NARRATIVE: CASE EVENT DATE: 20210607
